FAERS Safety Report 17402696 (Version 2)
Quarter: 2020Q2

REPORT INFORMATION
  Report Type: Spontaneous
  Country: DE (occurrence: DE)
  Receive Date: 20200211
  Receipt Date: 20200609
  Transmission Date: 20200713
  Serious: Yes (Death, Life-Threatening, Hospitalization, Other)
  Sender: FDA-Public Use
  Company Number: DE-BAYER-2020-020186

PATIENT
  Age: 79 Year
  Sex: Female
  Weight: 60 kg

DRUGS (2)
  1. GADOVIST [Suspect]
     Active Substance: GADOBUTROL
     Indication: MAGNETIC RESONANCE IMAGING BRAIN
     Dosage: 6 ML, ONCE
     Dates: start: 20200108, end: 20200108
  2. GADOVIST [Suspect]
     Active Substance: GADOBUTROL
     Indication: HEADACHE

REACTIONS (10)
  - Rash [Fatal]
  - Myoclonus [Fatal]
  - Pneumonia [None]
  - Anaphylactic shock [Fatal]
  - Cardiac arrest [Fatal]
  - Coma [None]
  - Vomiting [Fatal]
  - Hypoxic-ischaemic encephalopathy [Fatal]
  - Unresponsive to stimuli [Fatal]
  - Urinary tract infection [None]

NARRATIVE: CASE EVENT DATE: 20200108
